FAERS Safety Report 8880680 (Version 1)
Quarter: 2012Q4

REPORT INFORMATION
  Report Type: Report from Study
  Country: DE (occurrence: DE)
  Receive Date: 20121101
  Receipt Date: 20121101
  Transmission Date: 20130627
  Serious: Yes (Hospitalization)
  Sender: FDA-Public Use
  Company Number: DE-BAXTER-2012BAX020978

PATIENT
  Age: 68 Year
  Sex: Male

DRUGS (10)
  1. ENDOXAN 1G [Suspect]
     Indication: CHRONIC LYMPHOID LEUKAEMIA
     Route: 042
     Dates: end: 20060626
  2. RITUXIMAB [Suspect]
     Indication: CHRONIC LYMPHOID LEUKAEMIA
     Route: 042
  3. PENTOSTATIN [Suspect]
     Indication: CHRONIC LYMPHOID LEUKAEMIA
     Route: 042
     Dates: end: 20060626
  4. RISPERDAL [Concomitant]
     Indication: DRUG USE FOR UNKNOWN INDICATION
     Route: 065
  5. CLEXANE MULTI [Concomitant]
     Indication: DRUG USE FOR UNKNOWN INDICATION
     Route: 065
  6. PANTOZOL [Concomitant]
     Indication: DRUG USE FOR UNKNOWN INDICATION
     Route: 065
  7. INSULIN [Concomitant]
     Indication: DRUG USE FOR UNKNOWN INDICATION
     Route: 065
  8. ACETYLCYSTEINE [Concomitant]
     Indication: DRUG USE FOR UNKNOWN INDICATION
     Route: 065
  9. LASIX [Concomitant]
     Indication: DRUG USE FOR UNKNOWN INDICATION
     Route: 065
  10. KLACID PRO [Concomitant]
     Indication: DRUG USE FOR UNKNOWN INDICATION
     Route: 065

REACTIONS (5)
  - Pneumonia [Recovered/Resolved]
  - Pleural effusion [Recovered/Resolved]
  - Venous thrombosis [Recovered/Resolved]
  - Hyponatraemia [Recovered/Resolved]
  - Oedema [Recovered/Resolved]
